FAERS Safety Report 12203294 (Version 1)
Quarter: 2016Q1

REPORT INFORMATION
  Report Type: Spontaneous
  Country: US (occurrence: US)
  Receive Date: 20160323
  Receipt Date: 20160323
  Transmission Date: 20160526
  Serious: Yes (Life-Threatening)
  Sender: FDA-Public Use
  Company Number: US-ALKEM-001524

PATIENT
  Age: 63 Year
  Sex: Female

DRUGS (2)
  1. HYDROCHLOROTHIAZIDE/TRIAMTERENE [Suspect]
     Active Substance: HYDROCHLOROTHIAZIDE\TRIAMTERENE
     Indication: HYPERTENSION
     Dosage: DOSE: 37.5 MG TRIAMTERENE/ 25 MG HYDROCHLOROTHIAZIDE DAILY.
  2. DULOXETINE. [Suspect]
     Active Substance: DULOXETINE
     Indication: DEPRESSION
     Dosage: DOSE: TITRATED TO 40 MG DAILY OVER SEVERAL DAYS

REACTIONS (2)
  - Hyponatraemic encephalopathy [Recovered/Resolved]
  - Inappropriate antidiuretic hormone secretion [Recovered/Resolved]
